FAERS Safety Report 24789255 (Version 1)
Quarter: 2024Q4

REPORT INFORMATION
  Report Type: Spontaneous
  Country: US (occurrence: US)
  Receive Date: 20241230
  Receipt Date: 20241230
  Transmission Date: 20250115
  Serious: Yes (Hospitalization, Other)
  Sender: PFIZER
  Company Number: US-PFIZER INC-PV202400166976

PATIENT
  Age: 54 Year
  Sex: Female

DRUGS (2)
  1. CLINDAMYCIN HYDROCHLORIDE [Suspect]
     Active Substance: CLINDAMYCIN HYDROCHLORIDE
     Indication: Dental operation
     Dosage: 600 MG
     Route: 048
  2. CLINDAMYCIN PHOSPHATE [Suspect]
     Active Substance: CLINDAMYCIN PHOSPHATE
     Dosage: 600 MG EVERY 8 HOURS
     Route: 042

REACTIONS (3)
  - Treatment failure [Unknown]
  - Endocarditis [Unknown]
  - Drug resistance [Unknown]
